FAERS Safety Report 7564812-8 (Version None)
Quarter: 2011Q2

REPORT INFORMATION
  Report Type: 
  Country: None (occurrence: None)
  Receive Date: 20110622
  Receipt Date: 20110330
  Transmission Date: 20111010
  Serious: Yes (Other)
  Sender: FDA-Public Use
  Company Number: US-MYLANLABS-2010S1022459

PATIENT
  Age: 67 Year
  Sex: Female

DRUGS (6)
  1. CLOZAPINE [Suspect]
     Indication: SCHIZOPHRENIA
     Route: 048
     Dates: end: 20101201
  2. FISH OIL [Concomitant]
  3. CLOZAPINE [Suspect]
     Dosage: FOR 3 DAYS.
     Route: 048
     Dates: start: 20101206, end: 20101208
  4. COGENTIN [Concomitant]
  5. VITAMIN TAB [Concomitant]
  6. FERROUS SULFATE TAB [Concomitant]

REACTIONS (1)
  - GRANULOCYTOPENIA [None]
